FAERS Safety Report 23241275 (Version 1)
Quarter: 2023Q4

REPORT INFORMATION
  Report Type: Spontaneous
  Country: US (occurrence: US)
  Receive Date: 20231129
  Receipt Date: 20231129
  Transmission Date: 20240110
  Serious: Yes (Death, Other)
  Sender: FDA-Public Use
  Company Number: US-UNITED THERAPEUTICS-UNT-2023-033652

PATIENT
  Sex: Male

DRUGS (11)
  1. UNITUXIN [Suspect]
     Active Substance: DINUTUXIMAB
     Indication: Neuroblastoma recurrent
     Dosage: UNK, CYCLICAL (CYCLE 1)
     Route: 041
  2. UNITUXIN [Suspect]
     Active Substance: DINUTUXIMAB
     Dosage: UNK, CYCLICAL (CYCLE 2)
     Route: 041
  3. UNITUXIN [Suspect]
     Active Substance: DINUTUXIMAB
     Dosage: UNK, CYCLICAL (CYCLE 3)
     Route: 041
  4. UNITUXIN [Suspect]
     Active Substance: DINUTUXIMAB
     Dosage: UNK, CYCLICAL (CYCLE 4)
     Route: 041
  5. UNITUXIN [Suspect]
     Active Substance: DINUTUXIMAB
     Dosage: UNK, CYCLICAL (CYCLE 5)
     Route: 041
  6. UNITUXIN [Suspect]
     Active Substance: DINUTUXIMAB
     Dosage: UNK, CYCLICAL (CYCLE 6)
     Route: 041
  7. UNITUXIN [Suspect]
     Active Substance: DINUTUXIMAB
     Dosage: UNK, CYCLICAL (CYCLE 7)
     Route: 041
  8. UNITUXIN [Suspect]
     Active Substance: DINUTUXIMAB
     Dosage: UNK, CYCLICAL (CYCLE 8)
     Route: 041
  9. UNITUXIN [Suspect]
     Active Substance: DINUTUXIMAB
     Dosage: UNK, CYCLICAL (CYCLE 9)
     Route: 041
  10. IRINOTECAN [Concomitant]
     Active Substance: IRINOTECAN
     Indication: Neuroblastoma recurrent
     Dosage: UNK
     Route: 065
  11. TEMOZOLOMIDE [Concomitant]
     Active Substance: TEMOZOLOMIDE
     Indication: Neuroblastoma recurrent
     Dosage: UNK
     Route: 065

REACTIONS (1)
  - Neuroblastoma recurrent [Fatal]
